FAERS Safety Report 4962403-6 (Version None)
Quarter: 2006Q1

REPORT INFORMATION
  Report Type: 
  Country: None (occurrence: None)
  Receive Date: 20060329
  Receipt Date: 20060316
  Transmission Date: 20060701
  Serious: Yes (Other)
  Sender: FDA-Public Use
  Company Number: 2006S1002341

PATIENT
  Age: 46 Year
  Sex: Female
  Weight: 36.2878 kg

DRUGS (15)
  1. METHOTREXATE [Suspect]
     Indication: RHEUMATOID ARTHRITIS
     Dosage: 15 MG; QW; ORAL
     Route: 048
  2. PARACETAMOL/OXYCODONE HYDROCHLORIDE [Concomitant]
  3. ASCORBIC ACID [Concomitant]
  4. CALCIUM CARBONATE [Concomitant]
  5. ERGOCALCIFEROL [Concomitant]
  6. FERROUS SULFATE TAB [Concomitant]
  7. NABUMETONE [Concomitant]
  8. VITAMINS NOS [Concomitant]
  9. FOLIC ACID [Concomitant]
  10. DOCUSATE SODIUM [Concomitant]
  11. RABEPRAZOLE SODIUM [Concomitant]
  12. QUININE SULFATE [Concomitant]
  13. SALBUTAMOL [Concomitant]
  14. LEVOFLOXACIN [Concomitant]
  15. ALENDRONATE SODIUM [Concomitant]

REACTIONS (1)
  - MAMMOGRAM ABNORMAL [None]
